FAERS Safety Report 9527231 (Version 1)
Quarter: 2013Q3

REPORT INFORMATION
  Report Type: Spontaneous
  Country: US (occurrence: US)
  Receive Date: 20130917
  Receipt Date: 20130917
  Transmission Date: 20140515
  Serious: Yes (Other)
  Sender: FDA-Public Use
  Company Number: US-BAYER-2013-109549

PATIENT
  Age: 45 Year
  Sex: Female

DRUGS (8)
  1. ACETYLSALICYLIC ACID({=100 MG) [Suspect]
     Indication: ACUTE MYOCARDIAL INFARCTION
     Dosage: 325 MG, UNK
  2. ACETYLSALICYLIC ACID({=100 MG) [Suspect]
     Indication: PERCUTANEOUS CORONARY INTERVENTION
     Dosage: DAILY DOSE 81 MG
  3. CLOPIDOGREL [Concomitant]
     Indication: ACUTE MYOCARDIAL INFARCTION
     Dosage: 600 MG, ONCE, LOADING DOSE
  4. CLOPIDOGREL [Concomitant]
     Indication: PERCUTANEOUS CORONARY INTERVENTION
     Dosage: DAILY DOSE 75 MG
  5. MULTIVITAMINS [Concomitant]
  6. HEPARIN [Concomitant]
     Indication: ANTICOAGULANT THERAPY
  7. HEPARIN [Concomitant]
     Indication: PERCUTANEOUS CORONARY INTERVENTION
  8. METOPROLOL [Concomitant]
     Indication: ACUTE MYOCARDIAL INFARCTION
     Dosage: 25 MG, BID

REACTIONS (5)
  - Maternal exposure during pregnancy [None]
  - Dyspnoea [Recovered/Resolved]
  - Haemoptysis [Recovered/Resolved]
  - Oxygen saturation decreased [Recovered/Resolved]
  - Arrested labour [Recovered/Resolved]
